FAERS Safety Report 6744313-7 (Version None)
Quarter: 2010Q2

REPORT INFORMATION
  Report Type: 
  Country: None (occurrence: None)
  Receive Date: 20100527
  Receipt Date: 20100517
  Transmission Date: 20101027
  Serious: Yes (Hospitalization)
  Sender: FDA-Public Use
  Company Number: JP-MERCK-1002USA02848

PATIENT
  Age: 67 Year
  Sex: Female

DRUGS (8)
  1. EMEND [Suspect]
     Indication: PROPHYLAXIS OF NAUSEA AND VOMITING
     Route: 048
     Dates: start: 20100209, end: 20100209
  2. EMEND [Suspect]
     Route: 048
     Dates: start: 20100210, end: 20100211
  3. DECADRON PHOSPHATE [Concomitant]
     Route: 065
     Dates: start: 20100209, end: 20100209
  4. FLUOROURACIL [Suspect]
     Indication: OESOPHAGEAL CARCINOMA
     Route: 042
     Dates: start: 20100209, end: 20100211
  5. GRANISETRON HYDROCHLORIDE [Concomitant]
     Route: 065
     Dates: start: 20100209, end: 20100209
  6. ATARAX [Concomitant]
     Route: 065
     Dates: start: 20100211, end: 20100211
  7. PRIMPERAN TAB [Concomitant]
     Route: 065
     Dates: start: 20100211, end: 20100211
  8. AQUPLA [Concomitant]
     Route: 065
     Dates: start: 20100209, end: 20100209

REACTIONS (3)
  - ALTERED STATE OF CONSCIOUSNESS [None]
  - HEPATIC FUNCTION ABNORMAL [None]
  - HYPERAMMONAEMIA [None]
